FAERS Safety Report 11093878 (Version 2)
Quarter: 2015Q3

REPORT INFORMATION
  Report Type: Report from Study
  Country: US (occurrence: US)
  Receive Date: 20150506
  Receipt Date: 20150907
  Transmission Date: 20151125
  Serious: Yes (Hospitalization, Other)
  Sender: FDA-Public Use
  Company Number: US-GILEAD-2015-0152241

PATIENT
  Age: 55 Year
  Sex: Female

DRUGS (1)
  1. AMBRISENTAN [Suspect]
     Active Substance: AMBRISENTAN
     Indication: PORTOPULMONARY HYPERTENSION
     Dosage: 5 MG, QD
     Route: 065
     Dates: start: 20150124

REACTIONS (6)
  - Haematemesis [Unknown]
  - Nausea [Unknown]
  - Headache [Unknown]
  - Epistaxis [Unknown]
  - Medical device complication [Unknown]
  - Internal haemorrhage [Unknown]
